FAERS Safety Report 13504823 (Version 2)
Quarter: 2017Q3

REPORT INFORMATION
  Report Type: Spontaneous
  Country: US (occurrence: US)
  Receive Date: 20170502
  Receipt Date: 20170724
  Transmission Date: 20171127
  Serious: No
  Sender: FDA-Public Use
  Company Number: US-IMPAX LABORATORIES, INC-2017-IPXL-00343

PATIENT
  Age: 73 Year
  Sex: Male
  Weight: 81 kg

DRUGS (2)
  1. RYTARY [Suspect]
     Active Substance: CARBIDOPA\LEVODOPA
     Indication: PARKINSON^S DISEASE
     Dosage: (48.75/195 )MG, 3 CAPSULES, 3 /DAY
     Route: 048
     Dates: start: 20170113, end: 201702
  2. RYTARY [Suspect]
     Active Substance: CARBIDOPA\LEVODOPA
     Dosage: (48.75/195 )MG, 2 CAPSULES, 4 /DAY
     Route: 048
     Dates: start: 201702

REACTIONS (4)
  - Diarrhoea [Recovering/Resolving]
  - Dyskinesia [Recovering/Resolving]
  - Insomnia [Recovering/Resolving]
  - Weight decreased [Not Recovered/Not Resolved]

NARRATIVE: CASE EVENT DATE: 2017
